FAERS Safety Report 16061036 (Version 2)
Quarter: 2019Q1

REPORT INFORMATION
  Report Type: Spontaneous
  Country: TR (occurrence: TR)
  Receive Date: 20190312
  Receipt Date: 20190327
  Transmission Date: 20190418
  Serious: Yes (Death, Other)
  Sender: FDA-Public Use
  Company Number: PHHY2019TR050360

PATIENT
  Age: 73 Year
  Sex: Male
  Weight: 86 kg

DRUGS (4)
  1. MYCOPHENOLATE MOFETIL. [Suspect]
     Active Substance: MYCOPHENOLATE MOFETIL
     Indication: ADJUVANT THERAPY
     Dosage: 2 G, QD
     Route: 065
  2. METHYLPREDNISOLONE. [Suspect]
     Active Substance: METHYLPREDNISOLONE
     Indication: PEMPHIGUS
     Dosage: 120 MG/KG, QD (AROUND 1.5 MG/KG/DAY)
     Route: 065
  3. VALSARTAN/HYDROCHLOROTHIAZIDE [Concomitant]
     Active Substance: HYDROCHLOROTHIAZIDE\VALSARTAN
     Indication: HYPERTENSION
     Dosage: 80 MG VALSARTAN/12.5 MG HYDROCHLOROTHIAZIDE, QD
     Route: 065
  4. RITUXIMAB. [Suspect]
     Active Substance: RITUXIMAB
     Indication: IMMUNOSUPPRESSANT DRUG THERAPY
     Dosage: 1 G, Q12H (TWO WEEKS APART)
     Route: 065

REACTIONS (14)
  - Pneumocystis jirovecii pneumonia [Unknown]
  - Staphylococcal infection [Recovering/Resolving]
  - Pyrexia [Unknown]
  - Endocarditis [Unknown]
  - Skin erosion [Unknown]
  - Product use in unapproved indication [Unknown]
  - Cytomegalovirus infection [Unknown]
  - Bacteraemia [Unknown]
  - General physical health deterioration [Unknown]
  - Blister [Unknown]
  - Janeway lesion [Unknown]
  - Treatment failure [Unknown]
  - Multiple organ dysfunction syndrome [Fatal]
  - Lung abscess [Unknown]
